FAERS Safety Report 16062664 (Version 1)
Quarter: 2019Q1

REPORT INFORMATION
  Report Type: Spontaneous
  Country: US (occurrence: US)
  Receive Date: 20190312
  Receipt Date: 20190312
  Transmission Date: 20190418
  Serious: No
  Sender: FDA-Public Use
  Company Number: US-TRIS PHARMA, INC.-2019TRISPO00160

PATIENT

DRUGS (3)
  1. IBUPROFEN. [Suspect]
     Active Substance: IBUPROFEN
     Indication: PYREXIA
     Dosage: 1.8 ML OR 1.5 ML EVERY 6-8 HOURS
     Route: 065
     Dates: start: 20190124
  2. IBUPROFEN. [Suspect]
     Active Substance: IBUPROFEN
     Dosage: MORE DOSE
     Dates: start: 20190125
  3. GAS DROPS [Concomitant]
     Indication: PYREXIA
     Dosage: UNK
     Route: 065

REACTIONS (3)
  - Diarrhoea [Recovered/Resolved]
  - Vomiting [Recovered/Resolved]
  - Nausea [Recovered/Resolved]

NARRATIVE: CASE EVENT DATE: 20190126
